FAERS Safety Report 6442731-8 (Version None)
Quarter: 2009Q4

REPORT INFORMATION
  Report Type: 
  Country: None (occurrence: None)
  Receive Date: 20091117
  Receipt Date: 20091104
  Transmission Date: 20100525
  Serious: Yes (Other)
  Sender: FDA-Public Use
  Company Number: BR-ROCHE-666715

PATIENT
  Sex: Female
  Weight: 49 kg

DRUGS (1)
  1. RIVOTRIL [Suspect]
     Indication: INSOMNIA
     Dosage: DOSE; 2.5 MG/ML; FREQUENCY; UPTO 25 DROPS (2.5 MG) AT NIGHT
     Route: 048
     Dates: start: 20000101

REACTIONS (3)
  - FALL [None]
  - HEAD INJURY [None]
  - SYNCOPE [None]
